FAERS Safety Report 20028186 (Version 2)
Quarter: 2021Q4

REPORT INFORMATION
  Report Type: Spontaneous
  Country: GB (occurrence: GB)
  Receive Date: 20211103
  Receipt Date: 20211108
  Transmission Date: 20220303
  Serious: Yes (Death, Hospitalization, Other)
  Sender: FDA-Public Use
  Company Number: None

PATIENT
  Age: 47 Year
  Sex: Male
  Weight: 115 kg

DRUGS (5)
  1. BISOPROLOL [Suspect]
     Active Substance: BISOPROLOL
     Indication: Product used for unknown indication
  2. JARDIANCE [Suspect]
     Active Substance: EMPAGLIFLOZIN
     Indication: Diabetes mellitus
     Dosage: 25 MG, DAILY;
     Route: 050
  3. METFORMIN [Interacting]
     Active Substance: METFORMIN HYDROCHLORIDE
     Indication: Diabetes mellitus
     Dosage: 1 G, BID (EVERY 0.5 DAY);
  4. OMEPRAZOLE [Suspect]
     Active Substance: OMEPRAZOLE
     Indication: Product used for unknown indication
  5. ALCOHOL [Interacting]
     Active Substance: ALCOHOL

REACTIONS (5)
  - Lactic acidosis [Fatal]
  - Acute kidney injury [Fatal]
  - Euglycaemic diabetic ketoacidosis [Fatal]
  - Vomiting [Unknown]
  - Drug interaction [Fatal]

NARRATIVE: CASE EVENT DATE: 20210813
